FAERS Safety Report 6402088-5 (Version None)
Quarter: 2009Q4

REPORT INFORMATION
  Report Type: 
  Country: None (occurrence: None)
  Receive Date: 20091015
  Receipt Date: 20091009
  Transmission Date: 20100525
  Serious: Yes (Hospitalization)
  Sender: FDA-Public Use
  Company Number: FR-WYE-G04583109

PATIENT
  Sex: Male

DRUGS (6)
  1. TAZOCILLINE [Suspect]
     Indication: CHOLANGITIS
     Route: 042
     Dates: start: 20090909, end: 20090910
  2. TAZOCILLINE [Suspect]
     Indication: PSEUDOMONAS INFECTION
  3. TAZOCILLINE [Suspect]
     Indication: ENTEROCOCCAL INFECTION
  4. AMIKACIN [Suspect]
     Indication: CHOLANGITIS
     Route: 042
     Dates: start: 20090909, end: 20090909
  5. AMIKACIN [Suspect]
     Indication: PSEUDOMONAS INFECTION
     Route: 042
     Dates: start: 20090910, end: 20090910
  6. AMIKACIN [Suspect]
     Indication: ENTEROCOCCAL INFECTION

REACTIONS (9)
  - APHASIA [None]
  - HYPERAESTHESIA [None]
  - HYPERREFLEXIA [None]
  - MUSCLE CONTRACTIONS INVOLUNTARY [None]
  - MUSCLE RIGIDITY [None]
  - MYOCLONUS [None]
  - PAIN [None]
  - TREMOR [None]
  - VERTIGO [None]
